FAERS Safety Report 17242327 (Version 1)
Quarter: 2020Q1

REPORT INFORMATION
  Report Type: Spontaneous
  Country: NO (occurrence: NO)
  Receive Date: 20200107
  Receipt Date: 20200107
  Transmission Date: 20200409
  Serious: Yes (Hospitalization)
  Sender: FDA-Public Use
  Company Number: NO-SA-2019SA273639

PATIENT
  Age: 70 Year
  Sex: Female

DRUGS (5)
  1. PRALUENT [Suspect]
     Active Substance: ALIROCUMAB
     Indication: CARDIOVASCULAR DISORDER
  2. PRALUENT [Suspect]
     Active Substance: ALIROCUMAB
     Indication: LOW DENSITY LIPOPROTEIN ABNORMAL
     Dosage: 75 MG, QOW
  3. PRALUENT [Suspect]
     Active Substance: ALIROCUMAB
     Indication: TYPE IIA HYPERLIPIDAEMIA
     Dosage: 150 MG, QOW
     Route: 058
     Dates: start: 20190423, end: 20190507
  4. ALBYL-E [Concomitant]
     Active Substance: ASPIRIN\MAGNESIUM OXIDE
     Dosage: 75 MG, QD
  5. COZAAR [Concomitant]
     Active Substance: LOSARTAN POTASSIUM
     Dosage: 50 MG, QD

REACTIONS (8)
  - Malaise [Unknown]
  - Therapeutic response decreased [Unknown]
  - Mobility decreased [Recovering/Resolving]
  - Dizziness [Recovering/Resolving]
  - Abdominal pain upper [Recovering/Resolving]
  - Nausea [Recovering/Resolving]
  - Arthralgia [Recovering/Resolving]
  - Constipation [Recovering/Resolving]

NARRATIVE: CASE EVENT DATE: 20190510
